FAERS Safety Report 5463483-4 (Version None)
Quarter: 2007Q3

REPORT INFORMATION
  Report Type: 
  Country: None (occurrence: None)
  Receive Date: 20070920
  Receipt Date: 20070911
  Transmission Date: 20080115
  Serious: Yes (Other)
  Sender: FDA-Public Use
  Company Number: GB-PFIZER INC-2007075621

PATIENT
  Age: 44 Year
  Sex: Female
  Weight: 105 kg

DRUGS (12)
  1. CHAMPIX [Suspect]
     Indication: SMOKING CESSATION THERAPY
     Route: 048
     Dates: start: 20070716, end: 20070814
  2. BACLOFEN [Concomitant]
  3. BUDESONIDE [Concomitant]
     Route: 055
  4. ETORICOXIB [Concomitant]
  5. FUCIDINE CAP [Concomitant]
  6. MIGRALEVE [Concomitant]
  7. MONTELUKAST SODIUM [Concomitant]
  8. MOVELAT [Concomitant]
  9. OMEPRAZOLE [Concomitant]
  10. ACETAMINOPHEN [Concomitant]
  11. TERBUTALINE SULFATE [Concomitant]
     Route: 055
  12. TRAMADOL HCL [Concomitant]

REACTIONS (5)
  - CONFUSIONAL STATE [None]
  - DYSPHASIA [None]
  - MUSCLE SPASMS [None]
  - NAUSEA [None]
  - VOMITING [None]
